FAERS Safety Report 7132110-2 (Version None)
Quarter: 2010Q4

REPORT INFORMATION
  Report Type: 
  Country: None (occurrence: None)
  Receive Date: 20101129
  Receipt Date: 20101129
  Transmission Date: 20110411
  Serious: Yes (Hospitalization)
  Sender: FDA-Public Use
  Company Number: None

PATIENT
  Age: 70 Year
  Sex: Female
  Weight: 70.3075 kg

DRUGS (3)
  1. LISINOPRIL [Suspect]
     Indication: HYPERTENSION
     Dosage: ONE TAB A DAY
     Dates: start: 20100901
  2. LISINOPRIL [Suspect]
     Indication: HYPERTENSION
     Dosage: ONE TAB A DAY
     Dates: start: 20101001
  3. LISINOPRIL [Suspect]
     Indication: HYPERTENSION
     Dosage: ONE TAB A DAY
     Dates: start: 20101101

REACTIONS (8)
  - ARTHRALGIA [None]
  - CHEST DISCOMFORT [None]
  - COUGH [None]
  - DIZZINESS [None]
  - DYSPNOEA [None]
  - EXTRASYSTOLES [None]
  - FATIGUE [None]
  - HEART RATE DECREASED [None]
